FAERS Safety Report 8162450-X (Version None)
Quarter: 2012Q1

REPORT INFORMATION
  Report Type: 
  Country: None (occurrence: None)
  Receive Date: 20120221
  Receipt Date: 20120208
  Transmission Date: 20120608
  Serious: Yes (Hospitalization)
  Sender: FDA-Public Use
  Company Number: WAES 1202USA01505

PATIENT
  Age: 59 Year
  Sex: Female
  Weight: 105.2345 kg

DRUGS (5)
  1. ASPIRIN [Concomitant]
  2. METOPROLOL SUCCINATE [Concomitant]
  3. CAP VORINOSTAT UNK [Suspect]
     Indication: OVARIAN CANCER
     Dosage: PO
     Route: 048
  4. CARBOPLATIN [Suspect]
  5. TAXOL [Suspect]

REACTIONS (2)
  - FEMALE GENITAL TRACT FISTULA [None]
  - VAGINAL DISCHARGE [None]
